FAERS Safety Report 9247370 (Version 4)
Quarter: 2013Q4

REPORT INFORMATION
  Report Type: Spontaneous
  Country: US (occurrence: US)
  Receive Date: 20130423
  Receipt Date: 20131014
  Transmission Date: 20140711
  Serious: Yes (Death, Hospitalization)
  Sender: FDA-Public Use
  Company Number: US-JNJFOC-20130411613

PATIENT
  Age: 68 Year
  Sex: Male

DRUGS (15)
  1. REMICADE [Suspect]
     Indication: CROHN^S DISEASE
     Dosage: RECEIVED A TOTAL  OF 2 INFUSION
     Route: 042
     Dates: start: 20000613, end: 20000721
  2. AZATHIOPRINE [Suspect]
     Indication: CROHN^S DISEASE
     Route: 065
     Dates: start: 19990429, end: 20070830
  3. PREDNISONE [Suspect]
     Indication: PRODUCT USED FOR UNKNOWN INDICATION
     Dosage: MULTIPLE COURSES OVER MANY YEARS
     Route: 065
     Dates: start: 1986, end: 2006
  4. LISINOPRIL [Concomitant]
     Route: 065
  5. ZYRTEC [Concomitant]
     Dosage: AS NEEDED
     Route: 065
  6. CLARITIN [Concomitant]
     Dosage: AS NEEDED
     Route: 065
  7. VITAMIN C AND E [Concomitant]
     Route: 065
  8. FEOSOL [Concomitant]
     Route: 065
  9. OLOPATADINE [Concomitant]
     Dosage: DAILY
     Route: 047
  10. PENTASA [Concomitant]
     Indication: CROHN^S DISEASE
     Route: 065
     Dates: start: 19940215, end: 20000613
  11. LOTENSIN [Concomitant]
     Indication: HYPERTENSION
     Route: 065
  12. VITAMIN A [Concomitant]
     Route: 065
  13. VITAMIN C [Concomitant]
     Route: 065
  14. VITAMIN D [Concomitant]
     Route: 065
  15. FOLIC  ACID [Concomitant]
     Indication: ANAEMIA
     Route: 065
     Dates: end: 2007

REACTIONS (3)
  - Myeloid leukaemia [Fatal]
  - Influenza [Fatal]
  - Herpes simplex [Fatal]
